FAERS Safety Report 6038460-5 (Version None)
Quarter: 2009Q1

REPORT INFORMATION
  Report Type: 
  Country: None (occurrence: None)
  Receive Date: 20090115
  Receipt Date: 20090108
  Transmission Date: 20090719
  Serious: Yes (Hospitalization, Other)
  Sender: FDA-Public Use
  Company Number: DK-KINGPHARMUSA00001-K200900012

PATIENT
  Age: 76 Year
  Sex: Female

DRUGS (7)
  1. EPIPEN [Suspect]
     Indication: LIP OEDEMA
     Dosage: 0.30 MG, SINGLE
     Route: 030
  2. EPIPEN [Suspect]
     Indication: URTICARIA
  3. OXPRENOLOL [Concomitant]
     Dosage: 20 MG, QD
  4. RALOXIFENE HCL [Concomitant]
     Dosage: 60 MG, QD
  5. RANITIDINE [Concomitant]
     Dosage: 150 MG, BID
  6. PROMETHAZINE HCL [Concomitant]
     Indication: ANGIOEDEMA
  7. HYDROCORTISONE [Concomitant]
     Indication: ANGIOEDEMA

REACTIONS (2)
  - ANGINA PECTORIS [None]
  - STRESS CARDIOMYOPATHY [None]
